FAERS Safety Report 18304468 (Version 1)
Quarter: 2020Q3

REPORT INFORMATION
  Report Type: Spontaneous
  Country: DE (occurrence: DE)
  Receive Date: 20200924
  Receipt Date: 20200924
  Transmission Date: 20201103
  Serious: Yes (Hospitalization)
  Sender: FDA-Public Use
  Company Number: DE-AUROBINDO-AUR-APL-2020-049259

PATIENT
  Age: 19 Month
  Sex: Male

DRUGS (2)
  1. MIRTAZAPINE FILM COATED TABLETS 15MG [Suspect]
     Active Substance: MIRTAZAPINE
     Indication: PRODUCT USED FOR UNKNOWN INDICATION
     Dosage: 1 DOSAGE FORM, ONCE A DAY (DAILY DOSE: 1 DF DOSAGE FORM EVERY DAYS)
     Route: 048
     Dates: start: 20200604, end: 20200604
  2. VITEX [DIETARY SUPPLEMENT\HERBALS] [Suspect]
     Active Substance: DIETARY SUPPLEMENT\HERBALS
     Indication: PRODUCT USED FOR UNKNOWN INDICATION
     Dosage: 1 DOSAGE FORM, ONCE A DAY, DAILY DOSE: 1 DF DOSAGE FORM EVERY DAYS
     Route: 048
     Dates: start: 20200604, end: 20200604

REACTIONS (4)
  - Miosis [Unknown]
  - Accidental exposure to product by child [Unknown]
  - Product administration error [Unknown]
  - Somnolence [Unknown]

NARRATIVE: CASE EVENT DATE: 20200604
